FAERS Safety Report 14096409 (Version 3)
Quarter: 2017Q4

REPORT INFORMATION
  Report Type: Spontaneous
  Country: US (occurrence: US)
  Receive Date: 20171017
  Receipt Date: 20171030
  Transmission Date: 20180321
  Serious: Yes (Hospitalization, Other)
  Sender: FDA-Public Use
  Company Number: US-009507513-1710USA007138

PATIENT
  Age: 59 Year
  Sex: Female
  Weight: 68.93 kg

DRUGS (2)
  1. GLIMEPIRIDE. [Concomitant]
     Active Substance: GLIMEPIRIDE
     Indication: TYPE 2 DIABETES MELLITUS
     Dosage: 4 MG, BID
     Route: 048
  2. JANUVIA [Suspect]
     Active Substance: SITAGLIPTIN PHOSPHATE
     Indication: TYPE 2 DIABETES MELLITUS
     Dosage: 100 MG, QD
     Route: 048
     Dates: start: 20160711, end: 20171010

REACTIONS (22)
  - Hypertension [Unknown]
  - Asthma [Unknown]
  - Chest pain [Recovered/Resolved]
  - Chronic kidney disease [Unknown]
  - Carotid artery stenosis [Unknown]
  - Hepatic steatosis [Unknown]
  - Pancreatitis acute [Recovered/Resolved]
  - Hyperlipidaemia [Unknown]
  - Liver function test abnormal [Unknown]
  - Arteriosclerosis coronary artery [Unknown]
  - Intermittent claudication [Unknown]
  - Chronic obstructive pulmonary disease [Unknown]
  - Deep vein thrombosis [Unknown]
  - Left ventricular failure [Unknown]
  - Intervertebral disc degeneration [Unknown]
  - Fatigue [Unknown]
  - Osteoarthritis [Unknown]
  - Coronary artery disease [Unknown]
  - Transient ischaemic attack [Unknown]
  - Pulmonary mass [Unknown]
  - Hyperglycaemia [Recovered/Resolved]
  - Peripheral vascular disorder [Unknown]

NARRATIVE: CASE EVENT DATE: 201710
